FAERS Safety Report 6972956-4 (Version None)
Quarter: 2010Q3

REPORT INFORMATION
  Report Type: 
  Country: None (occurrence: None)
  Receive Date: 20100909
  Receipt Date: 20100722
  Transmission Date: 20110219
  Serious: No
  Sender: FDA-Public Use
  Company Number: US-KINGPHARMUSA00001-K201000928

PATIENT
  Age: 61 Year
  Sex: Female
  Weight: 71.655 kg

DRUGS (12)
  1. EMBEDA [Suspect]
     Dosage: 50 MG, UNK
     Route: 048
     Dates: start: 20100603
  2. NUBAIN [Suspect]
     Indication: MIGRAINE
     Dosage: UNK
     Route: 030
     Dates: start: 20100606, end: 20100606
  3. NUBAIN [Suspect]
     Dosage: UNK
     Route: 030
     Dates: start: 20100612, end: 20100612
  4. NUBAIN [Suspect]
     Dosage: UNK
     Route: 030
     Dates: start: 20100101, end: 20100101
  5. PHENERGAN [Suspect]
     Indication: MIGRAINE
     Dosage: UNK
     Route: 030
     Dates: start: 20100606, end: 20100606
  6. PHENERGAN [Suspect]
     Dosage: UNK
     Route: 030
     Dates: start: 20100612, end: 20100612
  7. PHENERGAN [Suspect]
     Dosage: UNK
     Route: 030
     Dates: start: 20100101, end: 20100101
  8. NEXIUM [Concomitant]
  9. LEXAPRO [Concomitant]
  10. LUNESTA [Concomitant]
  11. AMITRIPTYLINE HCL [Concomitant]
  12. TRAZODONE HCL [Concomitant]

REACTIONS (7)
  - ASTHENIA [None]
  - BLOOD PRESSURE DIASTOLIC INCREASED [None]
  - DYSPEPSIA [None]
  - FEELING COLD [None]
  - HYPERSENSITIVITY [None]
  - NAUSEA [None]
  - TREMOR [None]
